FAERS Safety Report 9980380 (Version 1)
Quarter: 2014Q1

REPORT INFORMATION
  Report Type: Spontaneous
  Country: PH (occurrence: PH)
  Receive Date: 20140307
  Receipt Date: 20140307
  Transmission Date: 20141002
  Serious: Yes (Death, Other)
  Sender: FDA-Public Use
  Company Number: PH-009507513-1403PHL001218

PATIENT
  Age: 58 Year
  Sex: Female

DRUGS (1)
  1. JANUVIA [Suspect]
     Dosage: 50 MG, ONE TABLET, ONCE A DAY
     Route: 048
     Dates: start: 20120804

REACTIONS (2)
  - Myocardial infarction [Fatal]
  - Cardiac arrest [Fatal]
